FAERS Safety Report 5843994-X (Version None)
Quarter: 2008Q3

REPORT INFORMATION
  Report Type: 
  Country: None (occurrence: None)
  Receive Date: 20080813
  Receipt Date: 20080801
  Transmission Date: 20090109
  Serious: Yes (Other)
  Sender: FDA-Public Use
  Company Number: US-JNJCH-2008020241

PATIENT
  Age: 65 Year
  Sex: Male
  Weight: 127 kg

DRUGS (6)
  1. COOL MINT LISTERINE [Suspect]
     Indication: DENTAL DISORDER PROPHYLAXIS
     Dosage: TEXT:3 TABLESPOONS ONCE
     Route: 048
     Dates: start: 20080801, end: 20080801
  2. PRAZOSIN HCL [Concomitant]
     Indication: HYPERTENSION
     Dosage: TEXT:5 MG TWICE DAILY
     Route: 048
  3. POTASSIUM CHLORIDE [Concomitant]
     Indication: BLOOD POTASSIUM
     Dosage: TEXT:750MG ONCE DAILY
     Route: 048
  4. FUROSEMIDE [Concomitant]
     Indication: MICTURITION DISORDER
     Dosage: TEXT:40 MG ONCE DAILY
     Route: 048
  5. LOVASTATIN [Concomitant]
     Indication: BLOOD PRESSURE
     Dosage: TEXT:100MG ONCE DAILY
     Route: 048
  6. SPIRONOLACTONE [Concomitant]
     Indication: BLOOD PRESSURE
     Dosage: TEXT:12.5MG ONCE DAILY
     Route: 048

REACTIONS (3)
  - ACCIDENTAL EXPOSURE [None]
  - MALAISE [None]
  - PHARMACEUTICAL PRODUCT COMPLAINT [None]
